FAERS Safety Report 17304862 (Version 1)
Quarter: 2020Q1

REPORT INFORMATION
  Report Type: Spontaneous
  Country: US (occurrence: US)
  Receive Date: 20200122
  Receipt Date: 20200122
  Transmission Date: 20200409
  Serious: Yes (Hospitalization)
  Sender: FDA-Public Use
  Company Number: US-BEH-2020111960

PATIENT
  Age: 59 Year
  Sex: Female

DRUGS (2)
  1. HIZENTRA [Suspect]
     Active Substance: HUMAN IMMUNOGLOBULIN G
     Dosage: 200
     Route: 042
     Dates: start: 20150101
  2. HIZENTRA [Suspect]
     Active Substance: HUMAN IMMUNOGLOBULIN G
     Dosage: 28 DAY
     Route: 058
     Dates: start: 2015

REACTIONS (6)
  - Incorrect route of product administration [Unknown]
  - Renal failure [Unknown]
  - Renal pain [Unknown]
  - Anxiety [Unknown]
  - Urine abnormality [Unknown]
  - No adverse event [Unknown]

NARRATIVE: CASE EVENT DATE: 2015
